FAERS Safety Report 7976538-7 (Version None)
Quarter: 2011Q4

REPORT INFORMATION
  Report Type: 
  Country: None (occurrence: None)
  Receive Date: 20111213
  Receipt Date: 20111025
  Transmission Date: 20120403
  Serious: No
  Sender: FDA-Public Use
  Company Number: US-AMGEN-USASP2011049322

PATIENT
  Age: 60 Year
  Sex: Female

DRUGS (4)
  1. ENBREL [Suspect]
     Indication: RHEUMATOID ARTHRITIS
     Dosage: 50 MG, QWK
     Dates: start: 20110801
  2. TREXALL [Concomitant]
     Dosage: UNK
  3. ENBREL [Suspect]
     Indication: FIBROMYALGIA
  4. PREDNISONE [Concomitant]

REACTIONS (10)
  - CARPAL TUNNEL SYNDROME [None]
  - BLOOD GLUCOSE INCREASED [None]
  - INJECTION SITE PAIN [None]
  - HEADACHE [None]
  - INJECTION SITE DISCOMFORT [None]
  - RHEUMATOID ARTHRITIS [None]
  - HYPOACUSIS [None]
  - TINNITUS [None]
  - DRY EYE [None]
  - EYE PRURITUS [None]
